FAERS Safety Report 5328992-7 (Version None)
Quarter: 2007Q2

REPORT INFORMATION
  Report Type: 
  Country: None (occurrence: None)
  Receive Date: 20070518
  Receipt Date: 20070508
  Transmission Date: 20071010
  Serious: Yes (Other)
  Sender: FDA-Public Use
  Company Number: US-PFIZER INC-2007037321

PATIENT
  Sex: Female
  Weight: 97.727 kg

DRUGS (19)
  1. CELEBREX [Suspect]
     Indication: OSTEOARTHRITIS
  2. CARDIOREX [Concomitant]
  3. LEXAPRO [Concomitant]
  4. LASIX [Concomitant]
  5. LOPRESSOR [Concomitant]
  6. BENICAR [Concomitant]
  7. FLECAINIDE ACETATE [Concomitant]
  8. COUMADIN [Concomitant]
  9. TRICOR [Concomitant]
  10. ZETIA [Concomitant]
  11. ASCORBIC ACID [Concomitant]
  12. VITAMIN E [Concomitant]
  13. CALCIUM CHLORIDE [Concomitant]
  14. FISH OIL [Concomitant]
  15. GLUCOSAMINE [Concomitant]
  16. DARVOCET [Concomitant]
  17. TYLENOL EXTRA-STRENGTH [Concomitant]
  18. TRAMADOL HCL [Concomitant]
  19. ACETYLSALICYLIC ACID SRT [Concomitant]

REACTIONS (3)
  - DRUG INEFFECTIVE [None]
  - INTERVERTEBRAL DISC PROTRUSION [None]
  - LUMBAR SPINAL STENOSIS [None]
